FAERS Safety Report 7465612-X (Version None)
Quarter: 2011Q2

REPORT INFORMATION
  Report Type: 
  Country: None (occurrence: None)
  Receive Date: 20110509
  Receipt Date: 20110426
  Transmission Date: 20111010
  Serious: Yes (Hospitalization, Other)
  Sender: FDA-Public Use
  Company Number: US-CELGENEUS-163-21880-10072538

PATIENT
  Sex: Female
  Weight: 88.9 kg

DRUGS (19)
  1. SLOW FE [Concomitant]
     Dosage: 160 MILLIGRAM
     Route: 048
     Dates: start: 20060925
  2. RYTHMOL [Concomitant]
     Indication: ATRIAL FIBRILLATION
     Dosage: 225 MILLIGRAM
     Route: 048
  3. COUMADIN [Concomitant]
     Dosage: 5 MILLIGRAM
     Route: 065
     Dates: start: 20090313
  4. MULTI-VITAMINS [Concomitant]
     Route: 065
  5. VITAMIN C [Concomitant]
     Dosage: 500 MILLIGRAM
     Route: 048
  6. HYDROCORTISONE [Concomitant]
     Route: 061
  7. LIPITOR [Concomitant]
     Dosage: 10 MILLIGRAM
     Route: 048
  8. SYNTHROID [Concomitant]
     Dosage: 100 MICROGRAM
     Route: 065
     Dates: start: 20060825
  9. VITAMIN D [Concomitant]
     Dosage: 1000 UNIT
     Route: 048
  10. AMIODARONE [Concomitant]
     Dosage: 200 MILLIGRAM
     Route: 065
     Dates: start: 20101027
  11. SIMVASTATIN [Concomitant]
     Dosage: 5 MILLIGRAM
     Route: 048
     Dates: start: 20100803
  12. NUTRITIONAL SUPPLEMENTS [Concomitant]
     Route: 065
  13. CARDIZEM [Concomitant]
     Dosage: 120 MILLIGRAM
     Route: 048
  14. ZESTRIL [Concomitant]
     Dosage: 10 MILLIGRAM
     Route: 048
  15. GLUCOSAMINE CHONDROITIN [Concomitant]
     Dosage: 500-400
     Route: 048
     Dates: start: 20060625
  16. REVLIMID [Suspect]
     Dosage: 10 MILLIGRAM
     Route: 048
     Dates: start: 20100608, end: 20101027
  17. HYDROCHLOROTHIAZIDE [Concomitant]
     Dosage: 25 MILLIGRAM
     Route: 065
     Dates: start: 20090120
  18. NAPROXEN (ALEVE) [Concomitant]
     Indication: ATRIAL FIBRILLATION
     Dosage: 220 MILLIGRAM
     Route: 048
     Dates: start: 20061018
  19. CALCIUM 600 + D [Concomitant]
     Dosage: 600 MILLIGRAM
     Route: 048
     Dates: start: 20060825

REACTIONS (5)
  - ANAEMIA [None]
  - NEUTROPENIA [None]
  - THROMBOCYTOPENIA [None]
  - ATRIAL FIBRILLATION [None]
  - WHITE BLOOD CELL COUNT DECREASED [None]
